FAERS Safety Report 20684412 (Version 2)
Quarter: 2022Q2

REPORT INFORMATION
  Report Type: Report from Study
  Country: US (occurrence: US)
  Receive Date: 20220407
  Receipt Date: 20220620
  Transmission Date: 20220720
  Serious: Yes (Hospitalization)
  Sender: FDA-Public Use
  Company Number: US-SEATTLE GENETICS-2022SGN03267

PATIENT
  Age: 66 Year
  Sex: Male

DRUGS (2)
  1. ENFORTUMAB VEDOTIN [Suspect]
     Active Substance: ENFORTUMAB VEDOTIN
     Indication: Transitional cell carcinoma
     Dosage: 1.25 MG/KG ON DAYS 1 AND 8 OF EVERY 3-WEEK CYCLE
     Route: 042
     Dates: start: 20210804, end: 20220131
  2. PEMBROLIZUMAB [Suspect]
     Active Substance: PEMBROLIZUMAB
     Indication: Transitional cell carcinoma
     Dosage: 200 MG ON DAY 1 OF EACH 3-WEEK CYCLE
     Route: 042
     Dates: start: 20210804, end: 20220131

REACTIONS (1)
  - Colonic fistula [Recovered/Resolved]

NARRATIVE: CASE EVENT DATE: 20220309
